FAERS Safety Report 12661240 (Version 2)
Quarter: 2016Q3

REPORT INFORMATION
  Report Type: Spontaneous
  Country: US (occurrence: US)
  Receive Date: 20160817
  Receipt Date: 20160901
  Transmission Date: 20161109
  Serious: No
  Sender: FDA-Public Use
  Company Number: US-RELYPSA-RLY2016000720

PATIENT
  Sex: Female

DRUGS (4)
  1. ROBITUSSIN (GUAIFENESIN) [Concomitant]
     Active Substance: GUAIFENESIN
  2. LYRICA [Concomitant]
     Active Substance: PREGABALIN
  3. RENVELA [Concomitant]
     Active Substance: SEVELAMER CARBONATE
  4. VELTASSA [Suspect]
     Active Substance: PATIROMER
     Indication: HYPERKALAEMIA
     Dosage: 8.4 G, QD
     Route: 048
     Dates: start: 20160209

REACTIONS (1)
  - Rash [Not Recovered/Not Resolved]
